FAERS Safety Report 6249881-X (Version None)
Quarter: 2009Q2

REPORT INFORMATION
  Report Type: 
  Country: None (occurrence: None)
  Receive Date: 20090629
  Receipt Date: 20090617
  Transmission Date: 20091009
  Serious: Yes (Death, Hospitalization, Other)
  Sender: FDA-Public Use
  Company Number: IE-PFIZER INC-2009228667

PATIENT
  Age: 81 Year

DRUGS (12)
  1. SALAZOPYRIN [Suspect]
     Indication: INFLAMMATORY BOWEL DISEASE
     Dosage: 1 MG, 2X/DAY
     Route: 048
     Dates: start: 20080211, end: 20080702
  2. DILZEM - SLOW RELEASE ^ELAN^ [Concomitant]
  3. PRAVASTATIN [Concomitant]
  4. NEXIUM [Concomitant]
  5. ALLOPURINOL [Concomitant]
  6. ELANTAN ^KNOLL^ [Concomitant]
  7. FRUMIL [Concomitant]
  8. PERINDOPRIL ERBUMINE [Concomitant]
  9. SPIRIVA [Concomitant]
  10. SERETIDE DISKUS [Concomitant]
  11. XALATAN [Concomitant]
  12. LEXAPRO [Concomitant]

REACTIONS (1)
  - BONE MARROW FAILURE [None]
